FAERS Safety Report 19831787 (Version 1)
Quarter: 2021Q3

REPORT INFORMATION
  Report Type: Spontaneous
  Country: US (occurrence: US)
  Receive Date: 20210915
  Receipt Date: 20210915
  Transmission Date: 20211014
  Serious: No
  Sender: FDA-Public Use
  Company Number: US-SA-2021SA303348

PATIENT
  Sex: Female

DRUGS (12)
  1. NITROFUR [Concomitant]
     Active Substance: NITROFURANTOIN
  2. SULFAMETHOXAZOLE;TRIMIPRAMINE [Concomitant]
  3. PHENAZOPYRIDINE. [Concomitant]
     Active Substance: PHENAZOPYRIDINE
  4. NYSTATIN. [Concomitant]
     Active Substance: NYSTATIN
  5. LORAZEPAM. [Concomitant]
     Active Substance: LORAZEPAM
  6. POTASSIUM CHLORIDE. [Concomitant]
     Active Substance: POTASSIUM CHLORIDE
  7. CYMBALTA [Concomitant]
     Active Substance: DULOXETINE HYDROCHLORIDE
  8. PREMARIN [Concomitant]
     Active Substance: ESTROGENS, CONJUGATED
  9. DUPIXENT [Suspect]
     Active Substance: DUPILUMAB
     Dosage: 300 MG, QOW
     Route: 058
     Dates: start: 20200821
  10. FUROSEMIDE. [Concomitant]
     Active Substance: FUROSEMIDE
  11. CELECOXIB. [Concomitant]
     Active Substance: CELECOXIB
  12. CLOBETASOL [Concomitant]
     Active Substance: CLOBETASOL

REACTIONS (1)
  - COVID-19 [Unknown]
